FAERS Safety Report 9897759 (Version 1)
Quarter: 2014Q1

REPORT INFORMATION
  Report Type: Report from Study
  Country: US (occurrence: US)
  Receive Date: 20140214
  Receipt Date: 20140214
  Transmission Date: 20141002
  Serious: No
  Sender: FDA-Public Use
  Company Number: US-ALEXION-A201304176

PATIENT
  Sex: 0

DRUGS (38)
  1. ECULIZUMAB [Suspect]
     Indication: PROPHYLAXIS AGAINST TRANSPLANT REJECTION
     Dosage: 1200 MG, UNK
     Route: 042
     Dates: start: 20121108, end: 20121108
  2. ECULIZUMAB [Suspect]
     Dosage: 900 MG, UNK
     Route: 042
     Dates: start: 20121109, end: 20121109
  3. ECULIZUMAB [Suspect]
     Dosage: 900 MG, UNK
     Route: 042
     Dates: start: 20121115, end: 20121115
  4. ECULIZUMAB [Suspect]
     Dosage: 900 MG, UNK
     Route: 042
     Dates: start: 20121120, end: 20121120
  5. ECULIZUMAB [Suspect]
     Dosage: 900 MG, UNK
     Route: 042
     Dates: start: 20121129, end: 20121129
  6. ECULIZUMAB [Suspect]
     Dosage: 900 MG, UNK
     Dates: start: 20121206, end: 20121206
  7. ECULIZUMAB [Suspect]
     Dosage: 1200 MG, UNK
     Route: 042
     Dates: start: 20121213, end: 20121213
  8. ECULIZUMAB [Suspect]
     Dosage: 1200 MG, UNK
     Route: 042
     Dates: start: 20121227, end: 20121227
  9. ECULIZUMAB [Suspect]
     Dosage: 1200 MG, UNK
     Route: 042
     Dates: start: 20120109, end: 20120109
  10. TACROLIMUS [Concomitant]
     Dates: start: 20121009, end: 20131015
  11. TACROLIMUS [Concomitant]
     Dates: start: 20131017
  12. CELLCEPT [Concomitant]
     Dates: start: 20121109
  13. PREDNISONE [Concomitant]
     Dates: start: 20121109
  14. MYCOPHENOLIC ACID [Concomitant]
     Dates: start: 20130514
  15. ERGOCALCIFEROL [Concomitant]
     Dates: start: 20121109
  16. VANCOMYCIN [Concomitant]
     Dates: start: 20121112
  17. CALCIUM CARBONATE [Concomitant]
     Dates: start: 20130516
  18. PENTAMIDINE [Concomitant]
     Dates: start: 20130516
  19. FEXOFENADINE [Concomitant]
     Dates: start: 20130529
  20. ALBUTEROL /00139502/ [Concomitant]
     Dates: start: 20130606
  21. ESCITALOPRAM [Concomitant]
     Dates: start: 20130606
  22. METOPROLOL TARTRATE [Concomitant]
     Dates: start: 20130606
  23. SODIUM BICARBONATE [Concomitant]
     Dates: start: 20130919
  24. SYMBICORT [Concomitant]
     Dates: start: 20131004
  25. MORPHINE [Concomitant]
     Dates: start: 20131013, end: 20131015
  26. CEFEPIME [Concomitant]
     Dates: start: 20131014, end: 20131017
  27. LINEZOLID [Concomitant]
     Dates: start: 20131014, end: 20131017
  28. FLUCONAZOLE [Concomitant]
     Dates: start: 20131015
  29. MAGNESIUM SULFATE [Concomitant]
     Dates: start: 20131014, end: 20131016
  30. ZOLPIDEM [Concomitant]
     Dates: start: 20131015, end: 20131015
  31. ACETAMINOPHEN [Concomitant]
     Dates: start: 20131016, end: 20131016
  32. AZITHROMYCIN [Concomitant]
     Dates: start: 20131016, end: 20131017
  33. CEPACOL /00283001/ [Concomitant]
     Dates: start: 20131016, end: 20131016
  34. TRAZODONE [Concomitant]
     Dates: start: 20131016, end: 20131016
  35. ASPIRIN [Concomitant]
     Dates: start: 20131017
  36. DAPSONE [Concomitant]
     Dates: start: 20131017
  37. LEVOFLOXACIN [Concomitant]
     Dates: start: 20131017, end: 20131021
  38. MIDAZOLAM [Concomitant]
     Dates: start: 20131017, end: 20131017

REACTIONS (1)
  - Mycobacterium kansasii infection [Not Recovered/Not Resolved]
